FAERS Safety Report 13861400 (Version 1)
Quarter: 2017Q3

REPORT INFORMATION
  Report Type: Spontaneous
  Country: FR (occurrence: FR)
  Receive Date: 20170811
  Receipt Date: 20170811
  Transmission Date: 20171127
  Serious: Yes (Hospitalization, Other)
  Sender: FDA-Public Use
  Company Number: FR-GILEAD-2017-0287711

PATIENT
  Age: 32 Year
  Sex: Male

DRUGS (3)
  1. VIREAD [Suspect]
     Active Substance: TENOFOVIR DISOPROXIL FUMARATE
     Indication: CHRONIC HEPATITIS B
     Dosage: 1 DF, QD
     Route: 048
     Dates: start: 2009, end: 20170724
  2. LAROXYL [Concomitant]
     Active Substance: AMITRIPTYLINE
     Dosage: 25 MG, QD
  3. VENLAFAXINE [Concomitant]
     Active Substance: VENLAFAXINE HYDROCHLORIDE
     Dosage: 75 MG, BID

REACTIONS (1)
  - Mitochondrial toxicity [Not Recovered/Not Resolved]

NARRATIVE: CASE EVENT DATE: 201605
